FAERS Safety Report 5990452-8 (Version None)
Quarter: 2008Q4

REPORT INFORMATION
  Report Type: 
  Country: None (occurrence: None)
  Receive Date: 20081211
  Receipt Date: 20081204
  Transmission Date: 20090506
  Serious: Yes (Hospitalization)
  Sender: FDA-Public Use
  Company Number: JP-PFIZER INC-2008099338

PATIENT

DRUGS (4)
  1. CELECOX [Suspect]
     Dosage: 200 MG, 2X/DAY
     Route: 048
     Dates: start: 20081111, end: 20081113
  2. AZULFIDINE EN-TABS [Suspect]
     Indication: RHEUMATOID ARTHRITIS
     Dosage: 500 MG, 2X/DAY
     Route: 048
     Dates: start: 20081028, end: 20081115
  3. NORVASC [Concomitant]
     Indication: HYPERTENSION
     Dosage: 5 MG, 1X/DAY
     Route: 048
     Dates: start: 20011001, end: 20081115
  4. MUCOSTA [Concomitant]
     Indication: PROPHYLAXIS
     Dosage: 100 MG, 2X/DAY
     Route: 048
     Dates: start: 20081111, end: 20081115

REACTIONS (1)
  - STEVENS-JOHNSON SYNDROME [None]
